FAERS Safety Report 7946788-4 (Version None)
Quarter: 2011Q4

REPORT INFORMATION
  Report Type: 
  Country: None (occurrence: None)
  Receive Date: 20111123
  Receipt Date: 20111108
  Transmission Date: 20120403
  Serious: Yes (Death)
  Sender: FDA-Public Use
  Company Number: 2011AT000442

PATIENT
  Age: 40 Year
  Sex: Female

DRUGS (1)
  1. ALPROSTADIL [Suspect]
     Indication: ARTERIAL OCCLUSIVE DISEASE
     Dosage: 60 UG;BID;IVDRP
     Route: 041
     Dates: start: 20110928, end: 20111004

REACTIONS (1)
  - INTERSTITIAL LUNG DISEASE [None]
